FAERS Safety Report 5549306-3 (Version None)
Quarter: 2007Q4

REPORT INFORMATION
  Report Type: 
  Country: None (occurrence: None)
  Receive Date: 20071126
  Receipt Date: 20070530
  Transmission Date: 20080405
  Serious: Yes (Other)
  Sender: FDA-Public Use
  Company Number: 2007BH004871

PATIENT
  Age: 17 Year
  Sex: Male
  Weight: 100 kg

DRUGS (1)
  1. DIANEAL [Suspect]
     Indication: RENAL FAILURE CHRONIC
     Dosage: ;UNK;IP
     Route: 033

REACTIONS (2)
  - CATHETER RELATED INFECTION [None]
  - PERITONITIS BACTERIAL [None]
